FAERS Safety Report 7505483-6 (Version None)
Quarter: 2011Q2

REPORT INFORMATION
  Report Type: 
  Country: None (occurrence: None)
  Receive Date: 20110526
  Receipt Date: 20110518
  Transmission Date: 20111010
  Serious: Yes (Death, Hospitalization, Disabling)
  Sender: FDA-Public Use
  Company Number: DE-CUBIST-2008S1000356

PATIENT
  Age: 57 Year
  Sex: Male
  Weight: 84 kg

DRUGS (5)
  1. CUBICIN [Suspect]
     Indication: MEDIASTINITIS
     Route: 042
     Dates: start: 20070214, end: 20070222
  2. CLINDAMYCIN [Concomitant]
  3. VANCOMYCIN [Concomitant]
     Route: 042
  4. MEROPENEM [Concomitant]
     Route: 042
  5. CUBICIN [Suspect]
     Route: 042
     Dates: start: 20070214, end: 20070222

REACTIONS (4)
  - MULTI-ORGAN FAILURE [None]
  - HEPATIC ENCEPHALOPATHY [None]
  - RENAL FAILURE [None]
  - POLYNEUROPATHY [None]
